FAERS Safety Report 23572270 (Version 4)
Quarter: 2024Q2

REPORT INFORMATION
  Report Type: Spontaneous
  Country: US (occurrence: US)
  Receive Date: 20240227
  Receipt Date: 20240508
  Transmission Date: 20240715
  Serious: No
  Sender: FDA-Public Use
  Company Number: US-SANOFI-01954264

PATIENT
  Age: 31 Year
  Sex: Male

DRUGS (1)
  1. ADMELOG [Suspect]
     Active Substance: INSULIN LISPRO
     Indication: Type 1 diabetes mellitus
     Dosage: INSULIN PUMP AND DRUG TREATMENT DURATION:YEARS
     Route: 065

REACTIONS (1)
  - Blood glucose increased [Unknown]
